FAERS Safety Report 9161144 (Version 1)
Quarter: 2013Q1

REPORT INFORMATION
  Report Type: Report from Study
  Country: PL (occurrence: PL)
  Receive Date: 20130313
  Receipt Date: 20130313
  Transmission Date: 20140127
  Serious: Yes (Hospitalization)
  Sender: FDA-Public Use
  Company Number: PL-CELGENEUS-THCPL200700267

PATIENT
  Age: 64 Year
  Sex: Female

DRUGS (2)
  1. THALOMID [Suspect]
     Indication: PLASMA CELL MYELOMA
     Route: 048
     Dates: start: 20040525
  2. DEXAMETHASONE [Suspect]
     Indication: PLASMA CELL MYELOMA
     Route: 048
     Dates: start: 20040525

REACTIONS (1)
  - Ulcerative keratitis [Recovered/Resolved]
